FAERS Safety Report 24161357 (Version 1)
Quarter: 2024Q3

REPORT INFORMATION
  Report Type: Report from Study
  Country: US (occurrence: None)
  Receive Date: 20240801
  Receipt Date: 20240801
  Transmission Date: 20241017
  Serious: Yes (Hospitalization)
  Sender: ASTRAZENECA
  Company Number: 2024A170175

PATIENT
  Age: 13994 Day
  Sex: Female
  Weight: 68.5 kg

DRUGS (1)
  1. LYNPARZA [Suspect]
     Active Substance: OLAPARIB
     Indication: Breast cancer female
     Route: 048
     Dates: start: 20230928

REACTIONS (5)
  - Headache [Recovering/Resolving]
  - Gait disturbance [Recovering/Resolving]
  - Tinnitus [Recovering/Resolving]
  - Vitreous floaters [Recovering/Resolving]
  - Haemoglobin decreased [Recovering/Resolving]

NARRATIVE: CASE EVENT DATE: 20240714
